FAERS Safety Report 12244963 (Version 1)
Quarter: 2016Q2

REPORT INFORMATION
  Report Type: Spontaneous
  Country: US (occurrence: US)
  Receive Date: 20160407
  Receipt Date: 20160407
  Transmission Date: 20160815
  Serious: No
  Sender: FDA-Public Use
  Company Number: US-BAYER-2016-065396

PATIENT
  Age: 9 Year
  Sex: Female
  Weight: 22.67 kg

DRUGS (1)
  1. MIRALAX [Suspect]
     Active Substance: POLYETHYLENE GLYCOL 3350
     Indication: CONSTIPATION
     Dosage: UNK
     Route: 048
     Dates: start: 20160315, end: 20160401

REACTIONS (4)
  - Hypophagia [None]
  - Drug administered to patient of inappropriate age [None]
  - Product use issue [None]
  - Nausea [None]

NARRATIVE: CASE EVENT DATE: 20160315
